FAERS Safety Report 22187959 (Version 1)
Quarter: 2023Q2

REPORT INFORMATION
  Report Type: Other
  Country: US (occurrence: US)
  Receive Date: 20230408
  Receipt Date: 20230408
  Transmission Date: 20230722
  Serious: Yes (Death)
  Sender: FDA-Public Use
  Company Number: US-ALVOGEN-2023089919

PATIENT
  Age: 59 Year
  Sex: Female

DRUGS (3)
  1. AMPHETAMINE [Suspect]
     Active Substance: AMPHETAMINE
     Indication: Product used for unknown indication
  2. ACETAMINOPHEN\OPIUM ALKALOIDS, HYDROCHLORIDES [Suspect]
     Active Substance: ACETAMINOPHEN\OPIUM ALKALOIDS, HYDROCHLORIDES
     Indication: Product used for unknown indication
  3. ACETAMINOPHEN [Suspect]
     Active Substance: ACETAMINOPHEN
     Indication: Product used for unknown indication

REACTIONS (1)
  - Death [Fatal]
